FAERS Safety Report 4417076-8 (Version None)
Quarter: 2004Q2

REPORT INFORMATION
  Report Type: 
  Country: None (occurrence: None)
  Receive Date: 20040629
  Receipt Date: 20031210
  Transmission Date: 20050107
  Serious: No
  Sender: FDA-Public Use
  Company Number: US060077

PATIENT

DRUGS (1)
  1. ARANESP [Suspect]
     Indication: ANAEMIA
     Dosage: 100 MCG, WEEKLY
     Dates: start: 20031203

REACTIONS (3)
  - ABDOMINAL PAIN [None]
  - BLOOD AMYLASE INCREASED [None]
  - LIPASE INCREASED [None]
